FAERS Safety Report 9741596 (Version 1)
Quarter: 2013Q4

REPORT INFORMATION
  Report Type: Report from Study
  Country: US (occurrence: US)
  Receive Date: 20131210
  Receipt Date: 20131210
  Transmission Date: 20140711
  Serious: Yes (Death)
  Sender: FDA-Public Use
  Company Number: US-ROCHE-1313186

PATIENT
  Sex: Female

DRUGS (17)
  1. AVASTIN [Suspect]
     Indication: OVARIAN CANCER
     Route: 042
     Dates: start: 20110805
  2. NEULASTA [Concomitant]
     Route: 058
     Dates: start: 20110805
  3. PACLITAXEL [Concomitant]
     Route: 042
     Dates: start: 20110805
  4. CARBOPLATIN [Concomitant]
     Route: 042
     Dates: start: 20110805
  5. DIPHENHYDRAMINE HCL [Concomitant]
     Route: 042
     Dates: start: 20110805
  6. DEXAMETHASONE SODIUM PHOSPHATE [Concomitant]
     Route: 042
     Dates: start: 20110805
  7. PALONOSETRON HYDROCHLORIDE [Concomitant]
     Route: 042
     Dates: start: 20110805
  8. HYDROCORTISONE [Concomitant]
     Route: 042
     Dates: start: 20110805
  9. METOCLOPRAMIDE HCL [Concomitant]
     Dosage: EVERY 4-6 HOURS
     Route: 048
  10. MIRTAZAPINE [Concomitant]
     Route: 048
  11. MORPHINE SULFATE [Concomitant]
     Dosage: EVERY 8 HOURS
     Route: 048
  12. LOVENOX [Concomitant]
     Route: 058
  13. MIRALAX [Concomitant]
     Route: 048
  14. OMEPRAZOLE [Concomitant]
     Route: 048
  15. PROCHLORPERAZINE MALEATE [Concomitant]
     Indication: NAUSEA
     Dosage: EVERY 6 HOURS
     Route: 048
  16. RESTORIL (UNITED STATES) [Concomitant]
     Dosage: AS NEEDED
     Route: 048
  17. VALTREX [Concomitant]
     Route: 048

REACTIONS (1)
  - Death [Fatal]
